FAERS Safety Report 4704999-5 (Version None)
Quarter: 2005Q3

REPORT INFORMATION
  Report Type: 
  Country: None (occurrence: None)
  Receive Date: 20050701
  Receipt Date: 20050622
  Transmission Date: 20060218
  Serious: Yes (Hospitalization)
  Sender: FDA-Public Use
  Company Number: JP-JNJFOC-20050606497

PATIENT
  Sex: Female
  Weight: 44 kg

DRUGS (11)
  1. REMICADE [Suspect]
     Route: 042
  2. REMICADE [Suspect]
     Route: 042
  3. REMICADE [Suspect]
     Route: 042
  4. REMICADE [Suspect]
     Indication: RHEUMATOID ARTHRITIS
     Route: 042
  5. RHEUMATREX [Concomitant]
     Indication: RHEUMATOID ARTHRITIS
     Route: 049
  6. PREDNISOLONE [Concomitant]
     Indication: RHEUMATOID ARTHRITIS
     Route: 049
  7. LORCAM [Concomitant]
     Indication: RHEUMATOID ARTHRITIS
     Route: 049
  8. FOLIAMIN [Concomitant]
     Route: 049
  9. SOLON [Concomitant]
     Route: 049
  10. BAXO [Concomitant]
     Route: 049
  11. ISCOTIN [Concomitant]
     Route: 049

REACTIONS (1)
  - APPENDICITIS [None]
